FAERS Safety Report 18369001 (Version 2)
Quarter: 2020Q4

REPORT INFORMATION
  Report Type: Report from Study
  Country: PE (occurrence: PE)
  Receive Date: 20201011
  Receipt Date: 20201113
  Transmission Date: 20210114
  Serious: Yes (Hospitalization)
  Sender: FDA-Public Use
  Company Number: PE-UCBSA-2020038909

PATIENT
  Age: 76 Year
  Sex: Male

DRUGS (1)
  1. CERTOLIZUMAB PEGOL RA [Suspect]
     Active Substance: CERTOLIZUMAB PEGOL
     Indication: RHEUMATOID ARTHRITIS
     Dosage: 400 MILLIGRAM, EV 15 DAYS
     Route: 058
     Dates: start: 20191208

REACTIONS (1)
  - Prostatic haemorrhage [Recovered/Resolved]

NARRATIVE: CASE EVENT DATE: 20200902
